FAERS Safety Report 13203934 (Version 1)
Quarter: 2017Q1

REPORT INFORMATION
  Report Type: Other
  Country: NO (occurrence: NO)
  Receive Date: 20170209
  Receipt Date: 20170209
  Transmission Date: 20170428
  Serious: Yes (Other)
  Sender: FDA-Public Use
  Company Number: NO-STRIDES ARCOLAB LIMITED-2017SP001674

PATIENT

DRUGS (1)
  1. TACROLIMUS. [Suspect]
     Active Substance: TACROLIMUS
     Indication: PRODUCT USED FOR UNKNOWN INDICATION
     Dosage: UNK

REACTIONS (8)
  - Blood creatinine increased [Unknown]
  - Hyperemesis gravidarum [Unknown]
  - Transaminases increased [Unknown]
  - Escherichia urinary tract infection [Unknown]
  - Escherichia sepsis [Recovered/Resolved]
  - Endocarditis [Recovered/Resolved]
  - Oesophagitis [Unknown]
  - Exposure during pregnancy [Unknown]
